FAERS Safety Report 23385154 (Version 1)
Quarter: 2024Q1

REPORT INFORMATION
  Report Type: Spontaneous
  Country: DE (occurrence: DE)
  Receive Date: 20240110
  Receipt Date: 20240110
  Transmission Date: 20240410
  Serious: Yes (Death, Other)
  Sender: FDA-Public Use
  Company Number: DE-STRIDES ARCOLAB LIMITED-2024SP000118

PATIENT
  Age: 6 Year
  Sex: Male

DRUGS (18)
  1. AMANTADINE [Suspect]
     Active Substance: AMANTADINE
     Indication: Borna virus infection
     Dosage: 5 MILLIGRAM/KILOGRAM, 2 SINGLE DOSES/DAY
     Route: 065
  2. AMANTADINE [Suspect]
     Active Substance: AMANTADINE
     Indication: Encephalitis
  3. CLARITHROMYCIN [Suspect]
     Active Substance: CLARITHROMYCIN
     Indication: Evidence based treatment
     Dosage: UNK
     Route: 065
  4. MYCOPHENOLATE MOFETIL [Suspect]
     Active Substance: MYCOPHENOLATE MOFETIL
     Indication: Immunosuppressant drug therapy
     Dosage: UNK
     Route: 065
  5. ACYCLOVIR [Suspect]
     Active Substance: ACYCLOVIR
     Indication: Evidence based treatment
     Dosage: UNK
     Route: 065
  6. AMPICILLIN [Suspect]
     Active Substance: AMPICILLIN
     Indication: Evidence based treatment
     Dosage: UNK
     Route: 065
  7. CYCLOSPORINE [Suspect]
     Active Substance: CYCLOSPORINE
     Indication: Immunosuppressant drug therapy
     Dosage: UNK
     Route: 065
  8. FAVIPIRAVIR [Suspect]
     Active Substance: FAVIPIRAVIR
     Indication: Borna virus infection
     Dosage: UNK, ON DAY 1: 1200 MG-1200 MG-600 MG
     Route: 065
  9. FAVIPIRAVIR [Suspect]
     Active Substance: FAVIPIRAVIR
     Indication: Encephalitis
     Dosage: 600 MILLIGRAM, ON DAY 1: 1200 MG-1200 MG-600 MG
     Route: 065
  10. FAVIPIRAVIR [Suspect]
     Active Substance: FAVIPIRAVIR
     Dosage: 600 MILLIGRAM, BID
     Route: 065
  11. CEFOTAXIME [Suspect]
     Active Substance: CEFOTAXIME SODIUM
     Indication: Evidence based treatment
     Dosage: UNK
     Route: 065
  12. RIBAVIRIN [Suspect]
     Active Substance: RIBAVIRIN
     Indication: Borna virus infection
     Dosage: 33 MILLIGRAM/KILOGRAM/DAY
     Route: 042
  13. RIBAVIRIN [Suspect]
     Active Substance: RIBAVIRIN
     Indication: Encephalitis
     Dosage: FOLLOWING DAYS 60 MG/KG ONCE A DAY IN 3 SINGLE DOSES
     Route: 042
  14. RIBAVIRIN [Suspect]
     Active Substance: RIBAVIRIN
     Dosage: 1 MG/KG/DAY
     Route: 037
  15. RIBAVIRIN [Suspect]
     Active Substance: RIBAVIRIN
     Dosage: 2 MG/KG/DAY, ON DAYS 2-4.
     Route: 037
  16. RIBAVIRIN [Suspect]
     Active Substance: RIBAVIRIN
     Dosage: 3 MG/KG/DAY, DAYS 5-8
     Route: 037
  17. REMDESIVIR [Suspect]
     Active Substance: REMDESIVIR
     Indication: Borna virus infection
     Dosage: UNK
     Route: 065
  18. REMDESIVIR [Suspect]
     Active Substance: REMDESIVIR
     Indication: Encephalitis

REACTIONS (3)
  - Death [Fatal]
  - Drug ineffective [Unknown]
  - Off label use [Unknown]
